FAERS Safety Report 6862468-0 (Version None)
Quarter: 2010Q3

REPORT INFORMATION
  Report Type: 
  Country: None (occurrence: None)
  Receive Date: 20100719
  Receipt Date: 20100702
  Transmission Date: 20110219
  Serious: Yes (Death, Hospitalization)
  Sender: FDA-Public Use
  Company Number: TCI2010A01921

PATIENT
  Age: 65 Year
  Sex: Female

DRUGS (11)
  1. LANSOPRAZOLE [Suspect]
     Indication: REFLUX OESOPHAGITIS
     Dosage: 30 MG (15 MG, 2 IN 1 D) PER ORAL
     Route: 048
     Dates: start: 20100508, end: 20100518
  2. LASIX [Suspect]
     Dosage: 10 MG (10 MG,1 IN 1 D) INTRAVENOUS
     Route: 042
     Dates: start: 20100507, end: 20100525
  3. CEFOTIAM HYDROCHLORIDE [Concomitant]
  4. SOLDACTONE (POTASSIUM CANRENOATE) [Concomitant]
  5. MAGLAX (MAGNESIUM OXIDE) [Concomitant]
  6. ZYPREXA ZYDIS [Concomitant]
  7. SILECE (FLUNITRAZEPAM) [Concomitant]
  8. GLYCYRON (AMINOACETIC ACID, DL-METHIONINE, GLYCYRRHIZIC ACID) [Concomitant]
  9. MAGNESIUM OXIDE [Concomitant]
  10. FAMOTIDINE [Concomitant]
  11. ZYPREXA [Concomitant]

REACTIONS (4)
  - ACUTE RESPIRATORY FAILURE [None]
  - CARDIAC FAILURE ACUTE [None]
  - LIVER DISORDER [None]
  - PNEUMONIA ASPIRATION [None]
